FAERS Safety Report 12979148 (Version 16)
Quarter: 2019Q3

REPORT INFORMATION
  Report Type: Spontaneous
  Country: BR (occurrence: BR)
  Receive Date: 20161128
  Receipt Date: 20190805
  Transmission Date: 20191004
  Serious: Yes (Other)
  Sender: FDA-Public Use
  Company Number: BR-GLAXOSMITHKLINE-BR2016GSK087434

PATIENT
  Sex: Female
  Weight: 69 kg

DRUGS (3)
  1. BENLYSTA [Suspect]
     Active Substance: BELIMUMAB
     Dosage: 400 UNK, UNK
  2. BENLYSTA [Suspect]
     Active Substance: BELIMUMAB
     Indication: SYSTEMIC LUPUS ERYTHEMATOSUS
     Dosage: 600 MG, UNK
     Dates: start: 20160315
  3. BENLYSTA [Suspect]
     Active Substance: BELIMUMAB
     Dosage: 200 UNK, UNK

REACTIONS (12)
  - Nasopharyngitis [Unknown]
  - Weight increased [Unknown]
  - Circumstance or information capable of leading to medication error [Recovered/Resolved]
  - Rhinorrhoea [Unknown]
  - Inappropriate schedule of product administration [Recovered/Resolved]
  - Swelling [Unknown]
  - Influenza [Unknown]
  - Varicose vein [Unknown]
  - Urinary tract infection [Unknown]
  - Product dose omission [Recovered/Resolved]
  - Underdose [Not Recovered/Not Resolved]
  - Weight decreased [Unknown]
